FAERS Safety Report 7815448-2 (Version None)
Quarter: 2011Q4

REPORT INFORMATION
  Report Type: 
  Country: None (occurrence: None)
  Receive Date: 20111014
  Receipt Date: 20111005
  Transmission Date: 20120403
  Serious: Yes (Other)
  Sender: FDA-Public Use
  Company Number: PHHY2011HN88441

PATIENT
  Age: 15 Year
  Sex: Male

DRUGS (1)
  1. TRILEPTAL [Suspect]
     Indication: EPILEPSY
     Dosage: 2 DF, UNK
     Route: 048

REACTIONS (4)
  - SKIN LESION [None]
  - CUTANEOUS LUPUS ERYTHEMATOSUS [None]
  - ALOPECIA [None]
  - ERYTHEMA [None]
